FAERS Safety Report 7354850-2 (Version None)
Quarter: 2011Q1

REPORT INFORMATION
  Report Type: 
  Country: None (occurrence: None)
  Receive Date: 20110307
  Receipt Date: 20110223
  Transmission Date: 20110831
  Serious: Yes (Other)
  Sender: FDA-Public Use
  Company Number: 028131

PATIENT
  Sex: Female

DRUGS (1)
  1. CIMZIA [Suspect]
     Dosage: RECEIVED ONLY FIRST INJECTION SUBCUTANEOUS
     Route: 058

REACTIONS (1)
  - DRUG HYPERSENSITIVITY [None]
